FAERS Safety Report 7239447-7 (Version None)
Quarter: 2011Q1

REPORT INFORMATION
  Report Type: 
  Country: None (occurrence: None)
  Receive Date: 20110121
  Receipt Date: 20110114
  Transmission Date: 20110831
  Serious: Yes (Hospitalization, Other)
  Sender: FDA-Public Use
  Company Number: FR-BAYER-2011-005342

PATIENT
  Sex: Female

DRUGS (1)
  1. JASMINE [Suspect]
     Indication: ORAL CONTRACEPTION
     Dosage: 1 DF/DAY, 21 DAYS/MONTH
     Route: 048
     Dates: start: 20100701, end: 20100914

REACTIONS (4)
  - SOCIAL AVOIDANT BEHAVIOUR [None]
  - COGNITIVE DISORDER [None]
  - DYSARTHRIA [None]
  - CHOREA [None]
